FAERS Safety Report 16480551 (Version 1)
Quarter: 2019Q2

REPORT INFORMATION
  Report Type: Spontaneous
  Country: CN (occurrence: CN)
  Receive Date: 20190626
  Receipt Date: 20190626
  Transmission Date: 20190711
  Serious: No
  Sender: FDA-Public Use
  Company Number: CN-B. BRAUN MEDICAL INC.-2069683

PATIENT
  Age: 82 Year
  Sex: Female

DRUGS (1)
  1. NUTRILIPID I.V. FAT EMULSION [Suspect]
     Active Substance: SOYBEAN OIL
     Indication: PLEURAL EFFUSION
     Route: 041
     Dates: start: 20190524, end: 20190524

REACTIONS (4)
  - Palpitations [None]
  - Chills [None]
  - Tremor [None]
  - Pallor [None]

NARRATIVE: CASE EVENT DATE: 20190524
